FAERS Safety Report 4268675-8 (Version None)
Quarter: 2004Q1

REPORT INFORMATION
  Report Type: 
  Country: None (occurrence: None)
  Receive Date: 20040112
  Receipt Date: 20030827
  Transmission Date: 20041129
  Serious: Yes (Hospitalization)
  Sender: FDA-Public Use
  Company Number: NL-BRISTOL-MYERS SQUIBB COMPANY-12366464

PATIENT
  Age: 22 Year
  Sex: Male

DRUGS (2)
  1. ARIPIPRAZOLE [Suspect]
     Indication: SCHIZOPHRENIA
     Route: 048
     Dates: start: 20030708, end: 20030815
  2. CLONAZEPAM [Concomitant]
     Dates: start: 20030731

REACTIONS (2)
  - PSYCHOSOCIAL SUPPORT [None]
  - SOCIAL PROBLEM [None]
